FAERS Safety Report 5612142-3 (Version None)
Quarter: 2008Q1

REPORT INFORMATION
  Report Type: 
  Country: None (occurrence: None)
  Receive Date: 20080204
  Receipt Date: 20080125
  Transmission Date: 20080703
  Serious: Yes (Other)
  Sender: FDA-Public Use
  Company Number: PHEH2008US01252

PATIENT

DRUGS (1)
  1. EXELON [Suspect]
     Route: 062

REACTIONS (1)
  - HYPERTENSIVE CRISIS [None]
